FAERS Safety Report 9192151 (Version 1)
Quarter: 2013Q1

REPORT INFORMATION
  Report Type: Spontaneous
  Country: IT (occurrence: None)
  Receive Date: 20130325
  Receipt Date: 20130325
  Transmission Date: 20140127
  Serious: Yes (Life-Threatening)
  Sender: FDA-Public Use
  Company Number: FK201300900

PATIENT
  Age: 70 Year
  Sex: Male

DRUGS (3)
  1. IRINOTECAN (IRINOTECAN) [Suspect]
     Indication: COLON CANCER
     Dosage: IRINOTECAN (MANUFACTURER UNKNOWN) (IRINOTECAN) (IRINOTECAN) 360 MG, CYCLINICAL, INTRAVENOUS (NOT OTHERWISE SPECIFIED)
     Route: 042
     Dates: start: 20120528, end: 20120528
  2. FLUOROURACIL [Suspect]
     Dosage: 5600 MG, CYCLICAL, INTRAVENOUS (NOT OTHERWISE SPECIFIED)
     Route: 042
     Dates: start: 20120528, end: 20120528
  3. BEVACIZUMAB [Suspect]
     Dosage: 425 MG, CYCLICAL, INTRAVENOUS (NOT OTHERWISE SPECIFIED)
     Route: 042
     Dates: start: 20120528, end: 20120528

REACTIONS (1)
  - Atrial fibrillation [None]
